FAERS Safety Report 8171384 (Version 3)
Quarter: 2013Q2

REPORT INFORMATION
  Report Type: Report from Study
  Country: JP (occurrence: JP)
  Receive Date: 20111006
  Receipt Date: 20130528
  Transmission Date: 20140414
  Serious: Yes (Other)
  Sender: FDA-Public Use
  Company Number: JP-PFIZER INC-2011233087

PATIENT
  Age: 7 Year
  Sex: Female

DRUGS (3)
  1. SOMATROPIN [Suspect]
     Indication: BODY HEIGHT BELOW NORMAL
     Dosage: 2.7 MG, WEEKLY
     Dates: start: 20081027
  2. SOMATROPIN [Suspect]
     Indication: GROWTH HORMONE DEFICIENCY
     Dosage: 3 MG, WEEKLY
  3. SOMATROPIN [Suspect]
     Dosage: 3.3 MG, WEEKLY
     Dates: end: 20110512

REACTIONS (1)
  - Osteochondrosis [Recovering/Resolving]
